FAERS Safety Report 25899347 (Version 2)
Quarter: 2025Q4

REPORT INFORMATION
  Report Type: Spontaneous
  Country: CA (occurrence: CA)
  Receive Date: 20251009
  Receipt Date: 20251028
  Transmission Date: 20260118
  Serious: Yes (Other)
  Sender: ASTELLAS
  Company Number: CA-PFIZER INC-PV202500108365

PATIENT
  Age: 62 Year
  Sex: Male

DRUGS (4)
  1. PADCEV [Suspect]
     Active Substance: ENFORTUMAB VEDOTIN-EJFV
     Indication: Transitional cell carcinoma metastatic
     Dosage: 100 MG, CYCLIC, DAY 1 AND DAY 8?POWDER FOR SOLUTION FOR INFUSION
     Route: 042
     Dates: start: 20240919, end: 20250819
  2. PADCEV [Suspect]
     Active Substance: ENFORTUMAB VEDOTIN-EJFV
     Dosage: 100 MG, CYCLIC, DAY 1 AND DAY 8?POWDER FOR SOLUTION FOR INFUSION
     Route: 042
     Dates: start: 2025, end: 20251022
  3. KEYTRUDA [Concomitant]
     Active Substance: PEMBROLIZUMAB
     Indication: Product used for unknown indication
     Dosage: 200 MG, EVERY 3 WEEKS
     Route: 065
     Dates: start: 20240919
  4. PEMBROLIZUMAB [Concomitant]
     Active Substance: PEMBROLIZUMAB
     Indication: Transitional cell carcinoma metastatic
     Dosage: UNK
     Route: 065

REACTIONS (5)
  - Colitis [Unknown]
  - Malignant neoplasm progression [Unknown]
  - Transitional cell carcinoma metastatic [Unknown]
  - Rash [Unknown]
  - Hypoaesthesia [Unknown]

NARRATIVE: CASE EVENT DATE: 20250101
